FAERS Safety Report 8824467 (Version 1)
Quarter: 2012Q4

REPORT INFORMATION
  Report Type: 
  Country: US (occurrence: US)
  Receive Date: 20121004
  Receipt Date: 20121004
  Transmission Date: 20130627
  Serious: No
  Sender: FDA-Public Use
  Company Number: US-VIIV HEALTHCARE LIMITED-A0969894A

PATIENT
  Sex: Female

DRUGS (3)
  1. SELZENTRY [Suspect]
     Indication: HIV INFECTION
     Dosage: 150MG Twice per day
     Route: 048
  2. EPZICOM [Concomitant]
  3. PROTEASE INHIBITOR [Concomitant]

REACTIONS (1)
  - Oedema peripheral [Recovered/Resolved]
